FAERS Safety Report 18355548 (Version 1)
Quarter: 2020Q4

REPORT INFORMATION
  Report Type: Spontaneous
  Country: US (occurrence: US)
  Receive Date: 20201006
  Receipt Date: 20201006
  Transmission Date: 20210114
  Serious: Yes (Hospitalization)
  Sender: FDA-Public Use
  Company Number: None

PATIENT
  Age: 63 Year
  Sex: Male

DRUGS (1)
  1. ZYTIGA [Suspect]
     Active Substance: ABIRATERONE ACETATE
     Route: 048
     Dates: start: 202007

REACTIONS (6)
  - Blood pressure decreased [None]
  - Dehydration [None]
  - Chills [None]
  - Sepsis [None]
  - Blood glucose decreased [None]
  - Asthenia [None]

NARRATIVE: CASE EVENT DATE: 20200815
